FAERS Safety Report 11490413 (Version 1)
Quarter: 2015Q3

REPORT INFORMATION
  Report Type: Spontaneous
  Country: US (occurrence: US)
  Receive Date: 20150910
  Receipt Date: 20150910
  Transmission Date: 20151125
  Serious: No
  Sender: FDA-Public Use
  Company Number: US-TEVA-584281USA

PATIENT
  Sex: Female

DRUGS (1)
  1. DULOXETINE. [Suspect]
     Active Substance: DULOXETINE

REACTIONS (5)
  - Irritability [Unknown]
  - Drug ineffective [Unknown]
  - Product substitution issue [Unknown]
  - Hypoaesthesia oral [Unknown]
  - Anxiety [Unknown]
